FAERS Safety Report 6396044-3 (Version None)
Quarter: 2009Q4

REPORT INFORMATION
  Report Type: 
  Country: None (occurrence: None)
  Receive Date: 20091007
  Receipt Date: 20090923
  Transmission Date: 20100525
  Serious: Yes (Hospitalization)
  Sender: FDA-Public Use
  Company Number: 231183J09USA

PATIENT
  Age: 38 Year
  Sex: Male

DRUGS (4)
  1. REBIF [Suspect]
     Indication: MULTIPLE SCLEROSIS
     Dosage: 44 MCG, SUBCUTANEOUS
     Route: 058
     Dates: start: 20060107, end: 20090714
  2. TOPAMAX [Suspect]
     Indication: TREMOR
     Dates: start: 20090201, end: 20090714
  3. CALCIUM (CALCIUM-SANDOZ /00009901) [Concomitant]
  4. MULTIVITAMIN (MULTIVITAMIN /00831701/) [Concomitant]

REACTIONS (7)
  - ALANINE AMINOTRANSFERASE INCREASED [None]
  - AMMONIA INCREASED [None]
  - ASPARTATE AMINOTRANSFERASE INCREASED [None]
  - BLOOD PRESSURE INCREASED [None]
  - ENCEPHALOPATHY [None]
  - LIVER FUNCTION TEST ABNORMAL [None]
  - PYREXIA [None]
